FAERS Safety Report 6747129-0 (Version None)
Quarter: 2010Q2

REPORT INFORMATION
  Report Type: 
  Country: None (occurrence: None)
  Receive Date: 20100528
  Receipt Date: 20100517
  Transmission Date: 20101027
  Serious: Yes (Other)
  Sender: FDA-Public Use
  Company Number: US-PFIZER INC-2010062138

PATIENT

DRUGS (1)
  1. SOLU-MEDROL [Suspect]
     Dosage: 125 MG, UNK

REACTIONS (2)
  - BLOOD PRESSURE DECREASED [None]
  - MUSCLE SPASMS [None]
